FAERS Safety Report 6582524-4 (Version None)
Quarter: 2010Q1

REPORT INFORMATION
  Report Type: 
  Country: None (occurrence: None)
  Receive Date: 20100216
  Receipt Date: 20100211
  Transmission Date: 20100710
  Serious: Yes (Other)
  Sender: FDA-Public Use
  Company Number: US-RB-002352-10

PATIENT
  Age: 48 Year
  Sex: Female

DRUGS (1)
  1. SUBOXONE [Suspect]
     Dosage: TAPERING DOSES FROM 24 MG DAILY
     Route: 060
     Dates: start: 20100205, end: 20100209

REACTIONS (9)
  - HALLUCINATION [None]
  - IRRITABILITY [None]
  - MIGRAINE [None]
  - MOOD SWINGS [None]
  - MUSCULOSKELETAL STIFFNESS [None]
  - PARANOIA [None]
  - SWOLLEN TONGUE [None]
  - TREMOR [None]
  - VOMITING [None]
